FAERS Safety Report 7232678-1 (Version None)
Quarter: 2011Q1

REPORT INFORMATION
  Report Type: 
  Country: None (occurrence: None)
  Receive Date: 20110119
  Receipt Date: 20110114
  Transmission Date: 20110831
  Serious: Yes (Other)
  Sender: FDA-Public Use
  Company Number: US-BRISTOL-MYERS SQUIBB COMPANY-15483027

PATIENT
  Sex: Male

DRUGS (2)
  1. CARBOPLATIN [Suspect]
     Indication: HEAD AND NECK CANCER
     Dosage: AUC OF 1.5
  2. PACLITAXEL [Suspect]
     Indication: HEAD AND NECK CANCER

REACTIONS (1)
  - DYSPHAGIA [None]
